FAERS Safety Report 20512406 (Version 1)
Quarter: 2022Q1

REPORT INFORMATION
  Report Type: Spontaneous
  Country: GB (occurrence: GB)
  Receive Date: 20220224
  Receipt Date: 20220224
  Transmission Date: 20220423
  Serious: Yes (Hospitalization, Disabling, Other)
  Sender: FDA-Public Use
  Company Number: GB-JNJFOC-20211139162

PATIENT
  Age: 50 Year
  Sex: Male
  Weight: 95 kg

DRUGS (1)
  1. SIMPONI [Suspect]
     Active Substance: GOLIMUMAB
     Indication: Ankylosing spondylitis
     Route: 058
     Dates: start: 201502

REACTIONS (2)
  - Accident [Recovering/Resolving]
  - Ankle fracture [Unknown]

NARRATIVE: CASE EVENT DATE: 20211016
